FAERS Safety Report 18065455 (Version 1)
Quarter: 2020Q3

REPORT INFORMATION
  Report Type: Spontaneous
  Country: US (occurrence: US)
  Receive Date: 20200724
  Receipt Date: 20200724
  Transmission Date: 20201103
  Serious: Yes (Death, Hospitalization)
  Sender: FDA-Public Use
  Company Number: None

PATIENT
  Age: 68 Year
  Sex: Male
  Weight: 59.6 kg

DRUGS (1)
  1. ACALABRUTINIB. [Suspect]
     Active Substance: ACALABRUTINIB
     Dates: end: 20200715

REACTIONS (17)
  - Pharyngitis [None]
  - Abdominal distension [None]
  - Dyspnoea [None]
  - Renal vessel disorder [None]
  - Chromaturia [None]
  - Dysphagia [None]
  - Tachycardia [None]
  - Infection [None]
  - Discomfort [None]
  - Splenomegaly [None]
  - Disease progression [None]
  - Blood lactic acid increased [None]
  - Dysuria [None]
  - Oedema peripheral [None]
  - Lactic acidosis [None]
  - Mantle cell lymphoma [None]
  - Tachypnoea [None]

NARRATIVE: CASE EVENT DATE: 20200716
